FAERS Safety Report 8604998-7 (Version None)
Quarter: 2012Q3

REPORT INFORMATION
  Report Type: 
  Country: None (occurrence: None)
  Receive Date: 20120820
  Receipt Date: 20120808
  Transmission Date: 20120928
  Serious: No
  Sender: FDA-Public Use
  Company Number: US-BAYER-2012-082004

PATIENT
  Sex: Female

DRUGS (3)
  1. BIOIDENTICAL HORMONE CREAM [Concomitant]
  2. ESTRACE .01 [Concomitant]
  3. ALEVE (CAPLET) [Suspect]
     Route: 048

REACTIONS (1)
  - PAIN [None]
